FAERS Safety Report 5857486-5 (Version None)
Quarter: 2008Q3

REPORT INFORMATION
  Report Type: 
  Country: None (occurrence: None)
  Receive Date: 20080826
  Receipt Date: 20080818
  Transmission Date: 20090109
  Serious: Yes (Hospitalization)
  Sender: FDA-Public Use
  Company Number: US-TEVA-176194USA

PATIENT
  Age: 22 Year
  Sex: Male

DRUGS (7)
  1. TOBRAMYCIN SULFATE 40 MG/ML IN 2 + 30 ML VIALS [Suspect]
     Indication: CYSTIC FIBROSIS LUNG
     Route: 041
  2. PIPERACILLIN SODIUM AND TAZOBACTAM SODIUM [Suspect]
     Indication: CYSTIC FIBROSIS LUNG
     Route: 041
  3. VANCOMYCIN HYDROCHLORIDE [Suspect]
     Indication: CYSTIC FIBROSIS LUNG
     Route: 041
  4. SALBUTAMOL [Concomitant]
  5. IPRATROPIUM BROMIDE [Concomitant]
  6. COLISTIMETHATE SODIUM [Concomitant]
  7. MULTI-VITAMIN [Concomitant]

REACTIONS (1)
  - NEURALGIC AMYOTROPHY [None]
